FAERS Safety Report 5164711-5 (Version None)
Quarter: 2006Q4

REPORT INFORMATION
  Report Type: 
  Country: None (occurrence: None)
  Receive Date: 20061205
  Receipt Date: 20061128
  Transmission Date: 20070319
  Serious: Yes (Hospitalization)
  Sender: FDA-Public Use
  Company Number: US-SANOFI-SYNTHELABO-F03200600260

PATIENT
  Age: 50 Year
  Sex: Male

DRUGS (2)
  1. OXALIPLATIN [Suspect]
     Indication: OESOPHAGEAL CARCINOMA
     Dosage: 80 MG (40 MG/M2/WEEK) SCHEDULED FOR 5 WEEKS
     Route: 042
     Dates: start: 20061016, end: 20061016
  2. FLUOROURACIL [Suspect]
     Indication: OESOPHAGEAL CARCINOMA
     Dosage: 500 MG (250 MG/M2/24HRS MONDAY THROUGH FRIDAY) SCHEDULED FOR 5 WEEKS
     Route: 042
     Dates: start: 20061016, end: 20061020

REACTIONS (2)
  - ATRIAL FIBRILLATION [None]
  - SICK SINUS SYNDROME [None]
